FAERS Safety Report 9898603 (Version 1)
Quarter: 2014Q1

REPORT INFORMATION
  Report Type: Spontaneous
  Country: US (occurrence: US)
  Receive Date: 20140214
  Receipt Date: 20140214
  Transmission Date: 20141002
  Serious: No
  Sender: FDA-Public Use
  Company Number: US-GILEAD-2011-0044604

PATIENT
  Age: 58 Year
  Sex: Female
  Weight: 51.81 kg

DRUGS (3)
  1. LETAIRIS [Suspect]
     Indication: PRODUCT USED FOR UNKNOWN INDICATION
     Dosage: UNK
     Route: 048
  2. REVATIO [Suspect]
     Dosage: UNK
  3. REMODULIN [Suspect]
     Indication: COR PULMONALE CHRONIC
     Dosage: UNK

REACTIONS (1)
  - Syncope [Unknown]
